FAERS Safety Report 7222495-0 (Version None)
Quarter: 2011Q1

REPORT INFORMATION
  Report Type: 
  Country: None (occurrence: None)
  Receive Date: 20110112
  Receipt Date: 20110106
  Transmission Date: 20110831
  Serious: Yes (Hospitalization)
  Sender: FDA-Public Use
  Company Number: FR-PFIZER INC-2011003436

PATIENT
  Age: 63 Year
  Sex: Male

DRUGS (8)
  1. SERETIDE [Concomitant]
  2. LASIX [Concomitant]
  3. TAHOR [Suspect]
     Dosage: 80 MG, 1X/DAY
     Route: 048
     Dates: start: 20100801, end: 20101117
  4. ISOPTIN [Concomitant]
  5. TRIATEC [Concomitant]
  6. KARDEGIC [Concomitant]
  7. NEXIUM [Concomitant]
  8. TAHOR [Suspect]
     Dosage: 20 MG, UNK
     Dates: end: 20100801

REACTIONS (2)
  - RHABDOMYOLYSIS [None]
  - CYTOLYTIC HEPATITIS [None]
